FAERS Safety Report 17581307 (Version 3)
Quarter: 2020Q2

REPORT INFORMATION
  Report Type: Spontaneous
  Country: CN (occurrence: CN)
  Receive Date: 20200325
  Receipt Date: 20200410
  Transmission Date: 20200713
  Serious: Yes (Other)
  Sender: FDA-Public Use
  Company Number: CN-GLAXOSMITHKLINE-CN2020APC046247

PATIENT
  Sex: Male

DRUGS (2)
  1. BUDESONIDE-FORMOTEROL [Suspect]
     Active Substance: BUDESONIDE\FORMOTEROL
     Indication: CHRONIC OBSTRUCTIVE PULMONARY DISEASE
     Dosage: 2 PUFF(S), BID
     Route: 055
  2. TRELEGY ELLIPTA [Suspect]
     Active Substance: FLUTICASONE FUROATE\UMECLIDINIUM BROMIDE\VILANTEROL TRIFENATATE
     Indication: CHRONIC OBSTRUCTIVE PULMONARY DISEASE
     Dosage: 1 PUFF(S), QD, 100 UG/62.5 UG/25 UG
     Route: 055
     Dates: start: 20200305

REACTIONS (10)
  - Dizziness [Unknown]
  - Bedridden [Unknown]
  - Hypoxia [Unknown]
  - Dyspnoea [Unknown]
  - Drug ineffective [Not Recovered/Not Resolved]
  - Inappropriate schedule of product administration [Unknown]
  - Oxygen saturation abnormal [Unknown]
  - Product dose omission [Unknown]
  - Symptom recurrence [Recovered/Resolved]
  - Treatment noncompliance [Unknown]
